FAERS Safety Report 6746826-0 (Version None)
Quarter: 2010Q2

REPORT INFORMATION
  Report Type: 
  Country: None (occurrence: None)
  Receive Date: 20100528
  Receipt Date: 20100203
  Transmission Date: 20101027
  Serious: No
  Sender: FDA-Public Use
  Company Number: A0842822A

PATIENT
  Age: 61 Year
  Sex: Male

DRUGS (3)
  1. VENTOLIN [Suspect]
     Indication: BRONCHITIS
     Dosage: 2PUFF FOUR TIMES PER DAY
     Route: 055
     Dates: start: 20100111
  2. PRILOSEC [Concomitant]
  3. CELEBREX [Concomitant]

REACTIONS (1)
  - URTICARIA [None]
